FAERS Safety Report 9114974 (Version 1)
Quarter: 2013Q1

REPORT INFORMATION
  Report Type: Spontaneous
  Country: SI (occurrence: SI)
  Receive Date: 20130208
  Receipt Date: 20130208
  Transmission Date: 20140127
  Serious: Yes (Other)
  Sender: FDA-Public Use
  Company Number: SI-ROCHE-1188506

PATIENT
  Age: 65 Year
  Sex: Female

DRUGS (4)
  1. MABTHERA [Suspect]
     Indication: LYMPHOMA
     Route: 042
     Dates: start: 20130130, end: 20130130
  2. CIPRALEX [Concomitant]
     Route: 065
  3. QUETIAPINE FUMARATE [Concomitant]
     Route: 065
  4. LEXAURIN [Concomitant]
     Dosage: AS NECESSARY
     Route: 065

REACTIONS (3)
  - Dyspnoea [Recovered/Resolved]
  - Oxygen saturation decreased [Recovered/Resolved]
  - Sinus tachycardia [Recovered/Resolved]
